FAERS Safety Report 14927999 (Version 1)
Quarter: 2018Q2

REPORT INFORMATION
  Report Type: Spontaneous
  Country: IE (occurrence: IE)
  Receive Date: 20180523
  Receipt Date: 20180523
  Transmission Date: 20180711
  Serious: Yes (Hospitalization)
  Sender: FDA-Public Use
  Company Number: IE-GLAXOSMITHKLINE-IE2018GSK088499

PATIENT
  Age: 10 Year
  Sex: Female

DRUGS (1)
  1. SCOPODERM TTS [Suspect]
     Active Substance: SCOPOLAMINE
     Indication: PRODUCT USED FOR UNKNOWN INDICATION
     Dosage: UNK
     Dates: start: 201706

REACTIONS (8)
  - Dyskinesia [Unknown]
  - Hallucination, visual [Unknown]
  - Poor quality sleep [Unknown]
  - Logorrhoea [Unknown]
  - Mydriasis [Unknown]
  - Memory impairment [Unknown]
  - Nervousness [Unknown]
  - Prosopagnosia [Unknown]

NARRATIVE: CASE EVENT DATE: 201706
